FAERS Safety Report 11089013 (Version 1)
Quarter: 2015Q2

REPORT INFORMATION
  Report Type: Report from Study
  Country: BR (occurrence: BR)
  Receive Date: 20150504
  Receipt Date: 20150504
  Transmission Date: 20150821
  Serious: Yes (Other)
  Sender: FDA-Public Use
  Company Number: ALCN2014BR007363

PATIENT
  Age: 80 Year
  Sex: Male
  Weight: 67 kg

DRUGS (1)
  1. TRAVATAN BAC-FREE [Suspect]
     Active Substance: TRAVOPROST
     Indication: INTRAOCULAR PRESSURE INCREASED
     Dosage: 1 GTT, BID
     Route: 047

REACTIONS (1)
  - Cataract [Unknown]
